FAERS Safety Report 5847811-3 (Version None)
Quarter: 2008Q3

REPORT INFORMATION
  Report Type: 
  Country: None (occurrence: None)
  Receive Date: 20080814
  Receipt Date: 20080730
  Transmission Date: 20090109
  Serious: Yes (Disabling)
  Sender: FDA-Public Use
  Company Number: 8032124

PATIENT
  Age: 69 Year
  Sex: Female
  Weight: 48 kg

DRUGS (4)
  1. KEPPRA [Suspect]
     Indication: EPILEPSY
     Dosage: 500 MG 2/D PO
     Route: 048
     Dates: start: 20051001
  2. KEPPRA [Suspect]
     Indication: EPILEPSY
     Dosage: 750 MG
  3. LAMICTAL [Suspect]
     Indication: EPILEPSY
     Dosage: 50 MG 2/D PO
  4. LAMICTAL [Suspect]
     Indication: EPILEPSY
     Dosage: 100 MG 2/D PO
     Route: 048
     Dates: end: 20071201

REACTIONS (14)
  - AMNESIA [None]
  - CEREBROVASCULAR DISORDER [None]
  - DISTURBANCE IN ATTENTION [None]
  - DYSPHAGIA [None]
  - FEAR [None]
  - FROSTBITE [None]
  - GLOSSODYNIA [None]
  - MYALGIA [None]
  - NERVOUS SYSTEM DISORDER [None]
  - PAIN IN EXTREMITY [None]
  - POLYNEUROPATHY [None]
  - SCLERODERMA [None]
  - SPEECH DISORDER [None]
  - TENDON DISORDER [None]
